FAERS Safety Report 5636826-6 (Version None)
Quarter: 2008Q1

REPORT INFORMATION
  Report Type: 
  Country: None (occurrence: None)
  Receive Date: 20080219
  Receipt Date: 20080129
  Transmission Date: 20080703
  Serious: Yes (Hospitalization)
  Sender: FDA-Public Use
  Company Number: B0506959A

PATIENT
  Age: 1 Month
  Sex: Male

DRUGS (1)
  1. ZIDOVUDINE [Suspect]
     Indication: HIV INFECTION
     Dosage: 20 MG/KG/FOUR TIMES PER DAY / ORAL
     Route: 048

REACTIONS (5)
  - ACCIDENTAL OVERDOSE [None]
  - ANAEMIA [None]
  - FEEDING DISORDER NEONATAL [None]
  - INCORRECT DOSE ADMINISTERED [None]
  - STAPHYLOCOCCAL SEPSIS [None]
